FAERS Safety Report 8389303-6 (Version None)
Quarter: 2012Q2

REPORT INFORMATION
  Report Type: 
  Country: None (occurrence: None)
  Receive Date: 20120528
  Receipt Date: 20120518
  Transmission Date: 20120825
  Serious: Yes (Other)
  Sender: FDA-Public Use
  Company Number: US-ALLERGAN-1014199US

PATIENT
  Age: 60 Year
  Sex: Female

DRUGS (7)
  1. MEFLOQUINE HYDROCHLORIDE [Concomitant]
     Indication: PRODUCT USED FOR UNKNOWN INDICATION
  2. MIRTAZAPINE [Concomitant]
     Indication: PRODUCT USED FOR UNKNOWN INDICATION
  3. ENJUVIA [Concomitant]
     Indication: PRODUCT USED FOR UNKNOWN INDICATION
  4. RESTASIS [Suspect]
     Indication: SJOGREN'S SYNDROME
     Dosage: 2 GTT, BID
     Route: 047
     Dates: start: 20100603, end: 20101210
  5. RESTASIS [Suspect]
     Indication: DRY EYE
  6. CITALOPRAM HYDROBROMIDE [Concomitant]
     Indication: PRODUCT USED FOR UNKNOWN INDICATION
  7. MULTI-VITAMINS [Concomitant]
     Indication: PRODUCT USED FOR UNKNOWN INDICATION

REACTIONS (1)
  - PROGRESSIVE MULTIFOCAL LEUKOENCEPHALOPATHY [None]
